FAERS Safety Report 5765817-X (Version None)
Quarter: 2008Q2

REPORT INFORMATION
  Report Type: 
  Country: None (occurrence: None)
  Receive Date: 20080611
  Receipt Date: 20080602
  Transmission Date: 20081010
  Serious: Yes (Hospitalization)
  Sender: FDA-Public Use
  Company Number: US-PFIZER INC-2007053933

PATIENT
  Sex: Male
  Weight: 74.8 kg

DRUGS (1)
  1. FELDENE [Suspect]
     Indication: ARTHRALGIA

REACTIONS (2)
  - HYPERHIDROSIS [None]
  - STEVENS-JOHNSON SYNDROME [None]
